FAERS Safety Report 21653188 (Version 1)
Quarter: 2022Q4

REPORT INFORMATION
  Report Type: Spontaneous
  Country: US (occurrence: US)
  Receive Date: 20221128
  Receipt Date: 20221128
  Transmission Date: 20230113
  Serious: Yes (Other)
  Sender: FDA-Public Use
  Company Number: US-CELLTRION INC.-2022US019805

PATIENT

DRUGS (3)
  1. RITUXIMAB [Suspect]
     Active Substance: RITUXIMAB
     Indication: Follicular lymphoma stage II
     Dosage: FOUR CYCLES
  2. RITUXIMAB [Suspect]
     Active Substance: RITUXIMAB
     Dosage: EVERY EIGHT WEEKS AS MAINTENANCE RITUXIMAB INFUSIONS
  3. BENDAMUSTINE [Suspect]
     Active Substance: BENDAMUSTINE
     Indication: Follicular lymphoma stage II
     Dosage: FOUR CYCLES

REACTIONS (2)
  - Neuroendocrine carcinoma of the skin [Unknown]
  - Off label use [Unknown]
